FAERS Safety Report 21963358 (Version 14)
Quarter: 2025Q1

REPORT INFORMATION
  Report Type: Spontaneous
  Country: US (occurrence: US)
  Receive Date: 20230207
  Receipt Date: 20250116
  Transmission Date: 20250409
  Serious: Yes (Hospitalization)
  Sender: PFIZER
  Company Number: US-PFIZER INC-202300011547

PATIENT
  Age: 82 Year
  Sex: Female
  Weight: 60.771 kg

DRUGS (8)
  1. TIKOSYN [Suspect]
     Active Substance: DOFETILIDE
     Indication: Cardiac disorder
     Dosage: 250 UG, 2X/DAY
     Route: 048
  2. TIKOSYN [Suspect]
     Active Substance: DOFETILIDE
     Dosage: 250 UG, 2X/DAY
     Route: 048
  3. TIKOSYN [Suspect]
     Active Substance: DOFETILIDE
     Dosage: 125 MCG CAPSULES; 2 CAPSULES PO BID
     Route: 048
  4. TIKOSYN [Suspect]
     Active Substance: DOFETILIDE
  5. WARFARIN [Concomitant]
     Active Substance: WARFARIN
  6. CLONIDINE [Concomitant]
     Active Substance: CLONIDINE
  7. METOPROLOL [Concomitant]
     Active Substance: METOPROLOL
  8. SPIRONOLACTONE [Concomitant]
     Active Substance: SPIRONOLACTONE

REACTIONS (5)
  - Withdrawal syndrome [Unknown]
  - Fall [Unknown]
  - Contusion [Unknown]
  - Gait disturbance [Unknown]
  - Memory impairment [Unknown]

NARRATIVE: CASE EVENT DATE: 20240201
